FAERS Safety Report 24787281 (Version 1)
Quarter: 2024Q4

REPORT INFORMATION
  Report Type: Other
  Country: CA (occurrence: CA)
  Receive Date: 20241230
  Receipt Date: 20241230
  Transmission Date: 20250115
  Serious: Yes (Other)
  Sender: APOTEX
  Company Number: CA-APOTEX-2024AP019986

PATIENT
  Age: 49 Year
  Sex: Female

DRUGS (1)
  1. MODAFINIL [Suspect]
     Active Substance: MODAFINIL
     Indication: Muscular dystrophy
     Dosage: 200 MILLIGRAM, BID
     Route: 048

REACTIONS (1)
  - Hypersomnia [Recovered/Resolved]
